FAERS Safety Report 10236085 (Version 3)
Quarter: 2014Q2

REPORT INFORMATION
  Report Type: Spontaneous
  Country: JP (occurrence: JP)
  Receive Date: 20140613
  Receipt Date: 20140619
  Transmission Date: 20141212
  Serious: Yes (Death, Other)
  Sender: FDA-Public Use
  Company Number: JP-SA-2014SA054004

PATIENT
  Age: 75 Year
  Sex: Male
  Weight: 68 kg

DRUGS (36)
  1. ELPLAT [Suspect]
     Indication: COLON CANCER
     Route: 041
     Dates: start: 20131217, end: 20131217
  2. ELPLAT [Suspect]
     Indication: COLON CANCER
     Route: 041
     Dates: start: 20131231, end: 20131231
  3. ELPLAT [Suspect]
     Indication: COLON CANCER
     Route: 041
     Dates: start: 20140114, end: 20140114
  4. ELPLAT [Suspect]
     Indication: COLON CANCER
     Route: 041
     Dates: start: 20140128, end: 20140128
  5. ELPLAT [Suspect]
     Indication: COLON CANCER
     Route: 041
     Dates: start: 20140210, end: 20140210
  6. CALCIUM LEVOFOLINATE [Suspect]
     Indication: COLON CANCER
     Route: 041
     Dates: start: 20131217, end: 20131217
  7. CALCIUM LEVOFOLINATE [Suspect]
     Indication: COLON CANCER
     Route: 041
     Dates: start: 20131231, end: 20131231
  8. CALCIUM LEVOFOLINATE [Suspect]
     Indication: COLON CANCER
     Route: 041
     Dates: start: 20140114, end: 20140114
  9. CALCIUM LEVOFOLINATE [Suspect]
     Indication: COLON CANCER
     Route: 041
     Dates: start: 20140128, end: 20140128
  10. CALCIUM LEVOFOLINATE [Suspect]
     Indication: COLON CANCER
     Route: 041
     Dates: start: 20140210, end: 20140210
  11. 5-FU [Suspect]
     Indication: COLON CANCER
     Route: 040
     Dates: start: 20131217, end: 20131217
  12. 5-FU [Suspect]
     Indication: COLON CANCER
     Route: 040
     Dates: start: 20131231, end: 20131231
  13. 5-FU [Suspect]
     Indication: COLON CANCER
     Route: 041
     Dates: start: 20131217, end: 20131217
  14. 5-FU [Suspect]
     Indication: COLON CANCER
     Route: 041
     Dates: start: 20131231, end: 20131231
  15. 5-FU [Suspect]
     Indication: COLON CANCER
     Route: 040
     Dates: start: 20140114, end: 20140114
  16. 5-FU [Suspect]
     Indication: COLON CANCER
     Route: 041
     Dates: start: 20140114, end: 20140114
  17. 5-FU [Suspect]
     Indication: COLON CANCER
     Route: 040
     Dates: start: 20140128, end: 20140128
  18. 5-FU [Suspect]
     Indication: COLON CANCER
     Route: 041
     Dates: start: 20140128, end: 20140128
  19. 5-FU [Suspect]
     Indication: COLON CANCER
     Route: 040
     Dates: start: 20140210, end: 20140210
  20. 5-FU [Suspect]
     Indication: COLON CANCER
     Route: 041
     Dates: start: 20140210, end: 20140210
  21. ERBITUX [Suspect]
     Indication: COLON CANCER
     Route: 041
     Dates: start: 20131217, end: 20131217
  22. ERBITUX [Suspect]
     Indication: COLON CANCER
     Route: 041
     Dates: start: 20131224, end: 20131224
  23. ERBITUX [Suspect]
     Indication: COLON CANCER
     Route: 041
     Dates: start: 20131231, end: 20131231
  24. ERBITUX [Suspect]
     Indication: COLON CANCER
     Route: 041
     Dates: start: 20140107, end: 20140107
  25. ERBITUX [Suspect]
     Indication: COLON CANCER
     Route: 041
     Dates: start: 20140114, end: 20140114
  26. ERBITUX [Suspect]
     Indication: COLON CANCER
     Route: 041
     Dates: start: 20140121, end: 20140121
  27. ERBITUX [Suspect]
     Indication: COLON CANCER
     Route: 041
     Dates: start: 20140128, end: 20140128
  28. ERBITUX [Suspect]
     Indication: COLON CANCER
     Route: 041
     Dates: start: 20140204, end: 20140204
  29. ERBITUX [Suspect]
     Indication: COLON CANCER
     Route: 041
     Dates: start: 20140210, end: 20140210
  30. ERBITUX [Suspect]
     Indication: COLON CANCER
     Route: 041
     Dates: start: 20140217, end: 20140217
  31. MINOMYCIN [Suspect]
     Indication: COLON CANCER
     Route: 048
     Dates: start: 20131217, end: 20140224
  32. PREDONINE [Concomitant]
     Dates: start: 20140306, end: 20140310
  33. VANCOMYCIN [Concomitant]
     Dates: start: 20140329, end: 20140331
  34. ELASPOL [Concomitant]
     Dates: start: 20140322, end: 20140405
  35. RED BLOOD CELLS, CONCENTRATED [Concomitant]
     Dates: start: 20140331, end: 20140331
  36. NORADRENALINE [Concomitant]
     Dates: start: 20140403, end: 20140403

REACTIONS (3)
  - Pneumothorax [Not Recovered/Not Resolved]
  - Interstitial lung disease [Fatal]
  - Hypoaesthesia [Unknown]
